FAERS Safety Report 4418134-4 (Version None)
Quarter: 2004Q3

REPORT INFORMATION
  Report Type: 
  Country: None (occurrence: None)
  Receive Date: 20040805
  Receipt Date: 20040805
  Transmission Date: 20050211
  Serious: No
  Sender: FDA-Public Use
  Company Number: None

PATIENT
  Sex: Male
  Weight: 108.8633 kg

DRUGS (2)
  1. ROCEPHIN [Suspect]
     Indication: CELLULITIS
     Dosage: 2GM IV DAILY
     Route: 042
     Dates: start: 20040701, end: 20040803
  2. ROCEPHIN [Suspect]
     Indication: OSTEOMYELITIS
     Dosage: 2GM IV DAILY
     Route: 042
     Dates: start: 20040701, end: 20040803

REACTIONS (1)
  - THROMBOCYTOPENIA [None]
